FAERS Safety Report 5632483-3 (Version None)
Quarter: 2008Q1

REPORT INFORMATION
  Report Type: 
  Country: None (occurrence: None)
  Receive Date: 20080131
  Receipt Date: 20071120
  Transmission Date: 20080703
  Serious: No
  Sender: FDA-Public Use
  Company Number: 163-21880-07100965

PATIENT
  Age: 72 Year
  Sex: Male

DRUGS (2)
  1. REVLIMID [Suspect]
     Indication: MULTIPLE MYELOMA
     Dosage: 15 MG, DAILY FOR 21 DAYS OUT OF 28 DAYS, ORAL
     Route: 048
     Dates: start: 20070927
  2. MEGACE [Concomitant]

REACTIONS (4)
  - ABDOMINAL DISCOMFORT [None]
  - ANOREXIA [None]
  - DYSPNOEA [None]
  - FATIGUE [None]
